FAERS Safety Report 6102250-5 (Version None)
Quarter: 2009Q1

REPORT INFORMATION
  Report Type: 
  Country: None (occurrence: None)
  Receive Date: 20090304
  Receipt Date: 20090225
  Transmission Date: 20090719
  Serious: Yes (Other)
  Sender: FDA-Public Use
  Company Number: US-BAYER-200910539BCC

PATIENT
  Age: 45 Year
  Sex: Male

DRUGS (4)
  1. ASPIRIN [Suspect]
     Indication: STENT PLACEMENT
     Route: 048
  2. ASPIRIN [Suspect]
  3. PLAVIX [Suspect]
     Indication: STENT PLACEMENT
  4. HEPARIN [Suspect]
     Indication: STENT PLACEMENT

REACTIONS (1)
  - THROMBOSIS [None]
